FAERS Safety Report 13301915 (Version 1)
Quarter: 2017Q1

REPORT INFORMATION
  Report Type: Spontaneous
  Country: CN (occurrence: CN)
  Receive Date: 20170307
  Receipt Date: 20170307
  Transmission Date: 20170428
  Serious: Yes (Other)
  Sender: FDA-Public Use
  Company Number: CN-GLAXOSMITHKLINE-CN2017GSK030104

PATIENT
  Sex: Male
  Weight: 62 kg

DRUGS (1)
  1. HEPTODIN [Suspect]
     Active Substance: LAMIVUDINE
     Indication: VIRAL INFECTION
     Dosage: 0.1 G, QD
     Route: 048
     Dates: start: 20160521, end: 20161119

REACTIONS (1)
  - Myocardial necrosis marker increased [Recovering/Resolving]
